FAERS Safety Report 6648819-0 (Version None)
Quarter: 2010Q1

REPORT INFORMATION
  Report Type: 
  Country: None (occurrence: None)
  Receive Date: 20100319
  Receipt Date: 20100308
  Transmission Date: 20100710
  Serious: Yes (Hospitalization, Other)
  Sender: FDA-Public Use
  Company Number: A-US2010-34664

PATIENT
  Age: 75 Year
  Sex: Female

DRUGS (4)
  1. TRACLEER [Suspect]
     Indication: PULMONARY ARTERIAL HYPERTENSION
     Dosage: ORAL
     Route: 048
     Dates: start: 20060215
  2. REVATIO [Concomitant]
  3. COUMADIN [Concomitant]
  4. PROSTACYCLIN (EPOPROSTENOL) [Concomitant]

REACTIONS (2)
  - FALL [None]
  - SUBDURAL HAEMATOMA [None]
